FAERS Safety Report 24306445 (Version 1)
Quarter: 2024Q3

REPORT INFORMATION
  Report Type: Spontaneous
  Country: IT (occurrence: IT)
  Receive Date: 20240911
  Receipt Date: 20240911
  Transmission Date: 20241017
  Serious: Yes (Other)
  Sender: MYLAN
  Company Number: IT-MYLANLABS-2024M1082310

PATIENT
  Sex: Female

DRUGS (6)
  1. BACLOFEN [Suspect]
     Active Substance: BACLOFEN
     Indication: Dystonia
     Dosage: UNK
     Route: 065
  2. GABAPENTIN [Suspect]
     Active Substance: GABAPENTIN
     Indication: Dystonia
     Dosage: UNK
     Route: 065
  3. TRIHEXYPHENIDYL HYDROCHLORIDE [Suspect]
     Active Substance: TRIHEXYPHENIDYL HYDROCHLORIDE
     Indication: Dystonia
     Dosage: UNK
     Route: 065
  4. TETRABENAZINE [Suspect]
     Active Substance: TETRABENAZINE
     Indication: Dystonia
     Dosage: UNK
     Route: 065
  5. TIZANIDINE [Suspect]
     Active Substance: TIZANIDINE
     Indication: Dystonia
     Dosage: UNK
     Route: 065
  6. MORPHINE [Suspect]
     Active Substance: MORPHINE
     Indication: Dystonia
     Dosage: UNK
     Route: 065

REACTIONS (2)
  - Treatment failure [Unknown]
  - Off label use [Unknown]
